FAERS Safety Report 7047857-6 (Version None)
Quarter: 2010Q4

REPORT INFORMATION
  Report Type: 
  Country: None (occurrence: None)
  Receive Date: 20101015
  Receipt Date: 20101004
  Transmission Date: 20110411
  Serious: Yes (Hospitalization, Other)
  Sender: FDA-Public Use
  Company Number: CA-ELI_LILLY_AND_COMPANY-CA201009000188

PATIENT
  Age: 62 Year
  Sex: Female
  Weight: 41.723 kg

DRUGS (16)
  1. FORTEO [Suspect]
     Indication: OSTEOPOROSIS
     Dosage: 20 UG, DAILY (1/D)
     Route: 058
     Dates: start: 20100120, end: 20100725
  2. CLONAZEPAM [Concomitant]
     Dosage: UNK, UNKNOWN
     Route: 065
  3. COLACE [Concomitant]
     Dosage: UNK, UNKNOWN
     Route: 065
  4. SYMBICORT [Concomitant]
     Dosage: UNK, UNKNOWN
     Route: 065
  5. HYDROCHLORZIDE [Concomitant]
     Dosage: UNK, UNKNOWN
     Route: 065
  6. CENTRUM FORTE [Concomitant]
     Dosage: UNK, UNKNOWN
     Route: 065
  7. AVENTYL HYDROCHLORIDE [Concomitant]
     Dosage: UNK, UNKNOWN
     Route: 065
  8. PANTOLOC                           /01263202/ [Concomitant]
     Dosage: UNK, UNKNOWN
     Route: 065
  9. SALBUTAMOL [Concomitant]
     Dosage: UNK, 1 TO 2 PUFFS
     Route: 065
  10. EFFEXOR [Concomitant]
     Dosage: UNK, UNKNOWN
     Route: 065
  11. CELEBREX [Concomitant]
     Dosage: UNK, UNKNOWN
     Route: 065
  12. OXYCONTIN [Concomitant]
     Dosage: UNK, UNKNOWN
     Route: 065
  13. SPIRIVA [Concomitant]
     Dosage: UNK, UNKNOWN
     Route: 065
  14. DETROL [Concomitant]
     Dosage: UNK, UNKNOWN
     Route: 065
  15. VITAMIN D [Concomitant]
     Dosage: UNK, UNKNOWN
     Route: 065
  16. PERCOCET [Concomitant]

REACTIONS (8)
  - BRONCHITIS CHRONIC [None]
  - CHRONIC OBSTRUCTIVE PULMONARY DISEASE [None]
  - DECREASED APPETITE [None]
  - DEHYDRATION [None]
  - EMPHYSEMA [None]
  - GENERAL PHYSICAL HEALTH DETERIORATION [None]
  - HYPERCALCAEMIA [None]
  - MALAISE [None]
